FAERS Safety Report 8645087 (Version 4)
Quarter: 2012Q4

REPORT INFORMATION
  Report Type: 
  Country: GB (occurrence: GB)
  Receive Date: 20120702
  Receipt Date: 20121123
  Transmission Date: 20130627
  Serious: Yes (Other)
  Sender: FDA-Public Use
  Company Number: PHFR2012GB003671

PATIENT
  Age: 52 Year
  Sex: Male

DRUGS (2)
  1. CLOZARIL [Suspect]
     Indication: SCHIZOPHRENIA
     Route: 048
     Dates: start: 20120430, end: 20120622
  2. CLOZARIL [Suspect]
     Dosage: 300 mg, UNK
     Route: 048

REACTIONS (9)
  - Enuresis [Recovered/Resolved]
  - Fall [Recovered/Resolved]
  - Epistaxis [Recovered/Resolved]
  - Myoclonus [Unknown]
  - Tremor [Recovered/Resolved]
  - Dyskinesia [Recovered/Resolved]
  - Dysarthria [Recovered/Resolved]
  - Urinary incontinence [Recovered/Resolved]
  - Haemoglobin decreased [Recovered/Resolved]
